FAERS Safety Report 7474110-9 (Version None)
Quarter: 2011Q2

REPORT INFORMATION
  Report Type: 
  Country: None (occurrence: None)
  Receive Date: 20110511
  Receipt Date: 20110502
  Transmission Date: 20111010
  Serious: Yes (Hospitalization)
  Sender: FDA-Public Use
  Company Number: US-WATSON-2011-06088

PATIENT
  Sex: Male

DRUGS (1)
  1. CIPROFLOXACIN HCL [Suspect]
     Indication: CONVULSION
     Dosage: UNK
     Route: 048
     Dates: start: 20090109

REACTIONS (6)
  - TOXIC EPIDERMAL NECROLYSIS [None]
  - THERMAL BURN [None]
  - MUCOUS MEMBRANE DISORDER [None]
  - MULTI-ORGAN DISORDER [None]
  - STEVENS-JOHNSON SYNDROME [None]
  - RASH [None]
